FAERS Safety Report 23729211 (Version 1)
Quarter: 2024Q2

REPORT INFORMATION
  Report Type: Spontaneous
  Country: US (occurrence: US)
  Receive Date: 20240410
  Receipt Date: 20240410
  Transmission Date: 20240716
  Serious: No
  Sender: FDA-Public Use
  Company Number: US-MELINTA THERAPEUTICS, LLC-US-MLNT-24-00011

PATIENT

DRUGS (3)
  1. REZZAYO [Suspect]
     Active Substance: REZAFUNGIN
     Indication: Candida infection
     Dosage: 200 MILLIGRAM
     Route: 042
  2. REZZAYO [Suspect]
     Active Substance: REZAFUNGIN
     Dosage: 400 MILLIGRAM
     Route: 042
  3. REZZAYO [Suspect]
     Active Substance: REZAFUNGIN
     Dosage: 400 MILLIGRAM
     Route: 042

REACTIONS (5)
  - Stent placement [Unknown]
  - Product prescribing issue [Unknown]
  - Drug ineffective for unapproved indication [Unknown]
  - Product use issue [Unknown]
  - Incorrect dose administered [Unknown]
